FAERS Safety Report 16639012 (Version 1)
Quarter: 2019Q3

REPORT INFORMATION
  Report Type: Spontaneous
  Country: GB (occurrence: GB)
  Receive Date: 20190726
  Receipt Date: 20190726
  Transmission Date: 20191004
  Serious: Yes (Death, Hospitalization)
  Sender: FDA-Public Use
  Company Number: GB-TEVA-2019-GB-1083755

PATIENT
  Sex: Male

DRUGS (1)
  1. CO-AMOXICLAV [Suspect]
     Active Substance: AMOXICILLIN\CLAVULANATE POTASSIUM
     Indication: UROSEPSIS
     Dates: start: 20180516

REACTIONS (2)
  - Toxic epidermal necrolysis [Fatal]
  - Documented hypersensitivity to administered product [Fatal]

NARRATIVE: CASE EVENT DATE: 20180516
